FAERS Safety Report 24151441 (Version 1)
Quarter: 2024Q3

REPORT INFORMATION
  Report Type: Spontaneous
  Country: US (occurrence: US)
  Receive Date: 20240730
  Receipt Date: 20240730
  Transmission Date: 20241016
  Serious: No
  Sender: JOHNSON AND JOHNSON
  Company Number: US-JNJFOC-20240723760

PATIENT
  Sex: Female

DRUGS (1)
  1. TYLENOL 8 HR ARTHRITIS PAIN [Suspect]
     Active Substance: ACETAMINOPHEN
     Indication: Back pain
     Dosage: TOOK 2 DOSAGE FORMS EVERY 8 HOURS BUT ALSO TOOK UPON NEEDED
     Route: 065

REACTIONS (1)
  - Inappropriate schedule of product administration [Unknown]
